FAERS Safety Report 25412909 (Version 1)
Quarter: 2025Q2

REPORT INFORMATION
  Report Type: Spontaneous
  Country: US (occurrence: US)
  Receive Date: 20250609
  Receipt Date: 20250609
  Transmission Date: 20250717
  Serious: No
  Sender: KALEO
  Company Number: US-KALEO, INC.-2025KL000010

PATIENT
  Age: 7 Year
  Sex: Female
  Weight: 30.7 kg

DRUGS (4)
  1. AUVI-Q [Suspect]
     Active Substance: EPINEPHRINE
     Indication: Vomiting
  2. AUVI-Q [Suspect]
     Active Substance: EPINEPHRINE
     Indication: Nasal congestion
  3. AUVI-Q [Suspect]
     Active Substance: EPINEPHRINE
     Indication: Flushing
  4. AUVI-Q [Suspect]
     Active Substance: EPINEPHRINE
     Indication: Oropharyngeal discomfort

REACTIONS (5)
  - Device failure [Not Recovered/Not Resolved]
  - Device deployment issue [Not Recovered/Not Resolved]
  - Device audio issue [Not Recovered/Not Resolved]
  - Cough [Unknown]
  - Nasal congestion [Unknown]

NARRATIVE: CASE EVENT DATE: 20250509
